FAERS Safety Report 6156497-2 (Version None)
Quarter: 2009Q2

REPORT INFORMATION
  Report Type: 
  Country: None (occurrence: None)
  Receive Date: 20090413
  Receipt Date: 20081002
  Transmission Date: 20091009
  Serious: Yes (Hospitalization)
  Sender: FDA-Public Use
  Company Number: OPER20080196

PATIENT
  Age: 30 Year
  Sex: Female

DRUGS (2)
  1. OPANA ER [Suspect]
  2. XANAX [Suspect]

REACTIONS (1)
  - HOSPITALISATION [None]
